FAERS Safety Report 9249304 (Version 1)
Quarter: 2013Q2

REPORT INFORMATION
  Report Type: Spontaneous
  Country: US (occurrence: US)
  Receive Date: 20130423
  Receipt Date: 20130423
  Transmission Date: 20140414
  Serious: Yes (Death, Other)
  Sender: FDA-Public Use
  Company Number: US-ELI_LILLY_AND_COMPANY-US201207002953

PATIENT
  Sex: Female

DRUGS (2)
  1. FORTEO [Suspect]
     Indication: OSTEOPOROSIS
     Dosage: 20 UG, QD
     Dates: start: 20120623
  2. FORTEO [Suspect]
     Dosage: 20 UG, QD

REACTIONS (4)
  - Septic shock [Fatal]
  - Infection [Not Recovered/Not Resolved]
  - Injection site bruising [Recovered/Resolved]
  - Nausea [Unknown]
